FAERS Safety Report 8270664-3 (Version None)
Quarter: 2012Q2

REPORT INFORMATION
  Report Type: 
  Country: None (occurrence: None)
  Receive Date: 20120410
  Receipt Date: 20120327
  Transmission Date: 20120825
  Serious: Yes (Hospitalization)
  Sender: FDA-Public Use
  Company Number: FR-CELGENEUS-056-21880-12031090

PATIENT
  Age: 67 Year
  Sex: Male

DRUGS (4)
  1. REVLIMID [Suspect]
     Dosage: 25 MILLIGRAM
     Route: 048
     Dates: start: 20101101
  2. DEXAMETHASONE [Concomitant]
     Route: 065
  3. REVLIMID [Suspect]
     Dosage: 15 MILLIGRAM
     Route: 048
     Dates: end: 20110101
  4. NEUPOGEN [Concomitant]
     Route: 065

REACTIONS (1)
  - BONE MARROW FAILURE [None]
